FAERS Safety Report 5246458-X (Version None)
Quarter: 2007Q1

REPORT INFORMATION
  Report Type: 
  Country: None (occurrence: None)
  Receive Date: 20070216
  Receipt Date: 20070127
  Transmission Date: 20070707
  Serious: Yes (Death)
  Sender: FDA-Public Use
  Company Number: ENTC2006-0258

PATIENT
  Age: 73 Year
  Sex: Male

DRUGS (5)
  1. STALEVO 100 [Suspect]
     Indication: PARKINSON'S DISEASE
     Dosage: 100/25/200 MG X 4 ORAL
     Route: 048
     Dates: start: 20060321
  2. METOPROLOL SUCCINATE [Concomitant]
  3. TRIMETAZIDINE [Concomitant]
  4. DIGOXIN [Concomitant]
  5. PENTOXIFYLLINE [Concomitant]

REACTIONS (3)
  - CARDIO-RESPIRATORY ARREST [None]
  - CHEST PAIN [None]
  - DYSPNOEA [None]
